FAERS Safety Report 8995855 (Version 2)
Quarter: 2013Q1

REPORT INFORMATION
  Report Type: Spontaneous
  Country: IT (occurrence: IT)
  Receive Date: 20130103
  Receipt Date: 20130109
  Transmission Date: 20140127
  Serious: Yes (Other)
  Sender: FDA-Public Use
  Company Number: IT-TEVA-378790USA

PATIENT
  Sex: 0

DRUGS (5)
  1. TREANDA [Suspect]
     Indication: PLASMA CELL MYELOMA
     Dosage: ON DAYS 1 AND 8
  2. BORTEZOMIB [Suspect]
     Indication: PLASMA CELL MYELOMA
     Dosage: ON DAYS 1,4,8, 11 IN 1ST, 2 CYCLES: ON DAYS 1, 8 , 15, 22 THREAFTER
  3. DEXAMETHASONE [Suspect]
     Indication: PLASMA CELL MYELOMA
  4. ACICLOVIR [Concomitant]
     Indication: ANTIBIOTIC PROPHYLAXIS
  5. TRIMETHOPRIM SULFAMETHOXAZOLE [Concomitant]
     Indication: ANTIBIOTIC PROPHYLAXIS

REACTIONS (1)
  - Neuropathy peripheral [Unknown]
